FAERS Safety Report 8889260 (Version 2)
Quarter: 2012Q4

REPORT INFORMATION
  Report Type: 
  Country: JP (occurrence: JP)
  Receive Date: 20121106
  Receipt Date: 20121112
  Transmission Date: 20130627
  Serious: Yes (Hospitalization, Other)
  Sender: FDA-Public Use
  Company Number: JP-JNJFOC-20121015515

PATIENT
  Age: 62 Year
  Sex: Male
  Weight: 75.4 kg

DRUGS (6)
  1. DOXORUBICIN [Suspect]
     Indication: DIFFUSE LARGE B-CELL LYMPHOMA
     Dosage: on day 2; completed 5 courses
     Route: 042
     Dates: start: 201010
  2. DOXORUBICIN [Suspect]
     Indication: DIFFUSE LARGE B-CELL LYMPHOMA
     Dosage: on day 2; completed 5 courses
     Route: 065
     Dates: start: 201010
  3. RITUXIMAB [Suspect]
     Indication: DIFFUSE LARGE B-CELL LYMPHOMA
     Dosage: day 1; completed 5 courses
     Route: 065
     Dates: start: 201010
  4. CYCLOPHOSPHAMIDE [Suspect]
     Indication: DIFFUSE LARGE B-CELL LYMPHOMA
     Dosage: day 2; completed 5 courses
     Route: 065
     Dates: start: 201010
  5. VINCRISTINE [Suspect]
     Indication: DIFFUSE LARGE B-CELL LYMPHOMA
     Dosage: day 2; completed 5 courses
     Route: 065
     Dates: start: 201010
  6. PREDNISOLONE [Suspect]
     Indication: DIFFUSE LARGE B-CELL LYMPHOMA
     Dosage: day 1-5 every 3 weeks; completed 5 courses
     Route: 065
     Dates: start: 201010

REACTIONS (2)
  - Cellulitis [Unknown]
  - Bacteraemia [Unknown]
